FAERS Safety Report 6013220-X (Version None)
Quarter: 2008Q4

REPORT INFORMATION
  Report Type: 
  Country: None (occurrence: None)
  Receive Date: 20081219
  Receipt Date: 20081212
  Transmission Date: 20090506
  Serious: Yes (Life-Threatening, Hospitalization)
  Sender: FDA-Public Use
  Company Number: FR-TEVA-182435ISR

PATIENT
  Sex: Male

DRUGS (6)
  1. FLUOROURACIL [Suspect]
     Indication: NEOPLASM
     Route: 042
     Dates: start: 20081126, end: 20081126
  2. FOLINIC ACID [Suspect]
     Indication: NEOPLASM
     Dates: start: 20081126, end: 20081126
  3. IRINOTECAN HYDROCHLORIDE [Suspect]
     Indication: NEOPLASM
     Route: 042
     Dates: start: 20081126, end: 20081126
  4. VASERETIC [Concomitant]
     Dates: start: 20081101
  5. ACETAMINOPHEN [Concomitant]
     Dates: start: 20081101
  6. ALLOPURINOL [Concomitant]
     Dates: start: 20081101

REACTIONS (2)
  - ARTERIOSPASM CORONARY [None]
  - LEFT VENTRICULAR DYSFUNCTION [None]
